FAERS Safety Report 6062605-4 (Version None)
Quarter: 2009Q1

REPORT INFORMATION
  Report Type: 
  Country: None (occurrence: None)
  Receive Date: 20090203
  Receipt Date: 20090122
  Transmission Date: 20090719
  Serious: Yes (Other)
  Sender: FDA-Public Use
  Company Number: CN-PFIZER INC-2009160484

PATIENT

DRUGS (1)
  1. ZYVOX [Suspect]

REACTIONS (3)
  - HAEMATURIA [None]
  - HAEMORRHAGE [None]
  - PLATELET COUNT DECREASED [None]
